FAERS Safety Report 8156764-7 (Version None)
Quarter: 2012Q1

REPORT INFORMATION
  Report Type: 
  Country: None (occurrence: None)
  Receive Date: 20120222
  Receipt Date: 20120214
  Transmission Date: 20120608
  Serious: Yes (Hospitalization, Other)
  Sender: FDA-Public Use
  Company Number: US-ROXANE LABORATORIES, INC.-2011-RO-00749RO

PATIENT
  Sex: Male
  Weight: 69 kg

DRUGS (7)
  1. PREDNISONE [Suspect]
     Indication: PROSTATE CANCER METASTATIC
     Dosage: 10 MG
     Route: 048
  2. INSULIN LISPRO [Concomitant]
  3. CIXUTUMUMAB [Suspect]
     Indication: PROSTATE CANCER METASTATIC
     Dates: start: 20090731, end: 20110511
  4. MITOXANTRONE [Suspect]
     Indication: PROSTATE CANCER METASTATIC
     Dates: end: 20091201
  5. GABAPENTIN [Concomitant]
  6. OXYCODONE HCL [Concomitant]
  7. ALBUTEROL [Concomitant]

REACTIONS (2)
  - COLITIS [None]
  - EJECTION FRACTION DECREASED [None]
